FAERS Safety Report 12085054 (Version 1)
Quarter: 2016Q1

REPORT INFORMATION
  Report Type: Spontaneous
  Country: US (occurrence: US)
  Receive Date: 20160217
  Receipt Date: 20160217
  Transmission Date: 20160526
  Serious: No
  Sender: FDA-Public Use
  Company Number: US-PFIZER INC-2016083813

PATIENT
  Sex: Female
  Weight: 136 kg

DRUGS (4)
  1. NEURONTIN [Suspect]
     Active Substance: GABAPENTIN
     Indication: NEUROPATHY PERIPHERAL
     Dosage: 900 MG, UNK
  2. NEURONTIN [Suspect]
     Active Substance: GABAPENTIN
     Dosage: 600 MG, 2X/DAY, 600 MG IN DAY AND 600 MG IN NIGHT
  3. NEURONTIN [Suspect]
     Active Substance: GABAPENTIN
     Dosage: 1500 MG, UNK
  4. NEURONTIN [Suspect]
     Active Substance: GABAPENTIN
     Dosage: 1200 MG, UNK

REACTIONS (2)
  - Hypersomnia [Unknown]
  - Drug ineffective for unapproved indication [Unknown]
